FAERS Safety Report 6843023-5 (Version None)
Quarter: 2010Q3

REPORT INFORMATION
  Report Type: 
  Country: None (occurrence: None)
  Receive Date: 20100714
  Receipt Date: 20071129
  Transmission Date: 20110219
  Serious: No
  Sender: FDA-Public Use
  Company Number: US-PFIZER INC-2007066154

PATIENT
  Sex: Female
  Weight: 62.14 kg

DRUGS (2)
  1. CHANTIX [Suspect]
     Indication: SMOKING CESSATION THERAPY
     Dates: start: 20070228
  2. PREVACID [Concomitant]

REACTIONS (1)
  - VAGINAL HAEMORRHAGE [None]
